FAERS Safety Report 22160327 (Version 1)
Quarter: 2023Q1

REPORT INFORMATION
  Report Type: Spontaneous
  Country: US (occurrence: None)
  Receive Date: 20230330
  Receipt Date: 20230330
  Transmission Date: 20230418
  Serious: No
  Sender: FDA-Public Use
  Company Number: None

PATIENT
  Age: 51 Year
  Sex: Female

DRUGS (1)
  1. BOTOX [Suspect]
     Active Substance: ONABOTULINUMTOXINA
     Indication: Migraine
     Dosage: OTHER QUANTITY : 200 UNITS?OTHER FREQUENCY : EVERY 12 WEEKS?
     Route: 030
     Dates: start: 20160518

REACTIONS (5)
  - Therapeutic response shortened [None]
  - Therapeutic product effect delayed [None]
  - Accident at work [None]
  - Head injury [None]
  - Headache [None]

NARRATIVE: CASE EVENT DATE: 20230206
